FAERS Safety Report 13346416 (Version 2)
Quarter: 2017Q4

REPORT INFORMATION
  Report Type: Spontaneous
  Country: AU (occurrence: AU)
  Receive Date: 20170317
  Receipt Date: 20171003
  Transmission Date: 20180320
  Serious: Yes (Hospitalization)
  Sender: FDA-Public Use
  Company Number: AU-B.I. PHARMACEUTICALS,INC./RIDGEFIELD-2017-BI-013632

PATIENT
  Age: 10 Decade
  Sex: Female

DRUGS (1)
  1. PRADAXA [Suspect]
     Active Substance: DABIGATRAN ETEXILATE MESYLATE
     Indication: PRODUCT USED FOR UNKNOWN INDICATION
     Route: 065

REACTIONS (2)
  - Road traffic accident [Recovered/Resolved]
  - Multiple fractures [Recovered/Resolved]

NARRATIVE: CASE EVENT DATE: 2016
